FAERS Safety Report 9346793 (Version 4)
Quarter: 2014Q2

REPORT INFORMATION
  Report Type: Spontaneous
  Country: JP (occurrence: JP)
  Receive Date: 20130613
  Receipt Date: 20140602
  Transmission Date: 20141212
  Serious: Yes (Life-Threatening)
  Sender: FDA-Public Use
  Company Number: JP-CUBIST PHARMACEUTICAL, INC.-2013CBST000332

PATIENT
  Sex: 0

DRUGS (15)
  1. CUBICIN [Suspect]
     Indication: SEPTIC SHOCK
     Dosage: 6 MG/KG, ONCE IN 2 DAYS
     Route: 041
     Dates: start: 20130319, end: 20130328
  2. CUBICIN [Suspect]
     Indication: OFF LABEL USE
  3. MEROPEN [Concomitant]
     Indication: SEPTIC SHOCK
     Dosage: 1 G, BID
     Route: 041
     Dates: start: 20130317, end: 20130329
  4. DALACIN-S [Concomitant]
     Indication: SEPTIC SHOCK
     Dosage: 600 MG, BID
     Route: 041
     Dates: start: 20130317, end: 20130323
  5. NESP [Concomitant]
     Indication: PRODUCT USED FOR UNKNOWN INDICATION
     Dosage: 20-60 ?G/MIN, UNK, INTRACUTANEOUS
     Route: 023
     Dates: start: 20130326
  6. LASIX [Concomitant]
     Indication: PRODUCT USED FOR UNKNOWN INDICATION
     Dosage: UNK, UNK
     Route: 042
     Dates: start: 20130317
  7. FOSTOIN [Concomitant]
     Indication: CONVULSION
     Dosage: 225 MG, QD
     Route: 041
     Dates: start: 20130317, end: 20130330
  8. NORMAL SALINE [Concomitant]
     Indication: SEPTIC SHOCK
     Dosage: UNK UNK, UNK
     Route: 065
     Dates: start: 20130317
  9. DOPAMINE [Concomitant]
     Indication: SEPTIC SHOCK
     Dosage: UNK UNK, UNK
     Route: 065
     Dates: start: 20130317
  10. VANCOMYCIN HCL [Concomitant]
     Indication: SEPTIC SHOCK
     Dosage: 1 G, QD
     Route: 065
     Dates: start: 20130317, end: 20130519
  11. PLATELETS, CONCENTRATED [Concomitant]
     Indication: DISSEMINATED INTRAVASCULAR COAGULATION
     Dosage: UNK UNK, UNK
     Route: 065
     Dates: start: 20130317
  12. GABEXATE MESILATE [Concomitant]
     Indication: DISSEMINATED INTRAVASCULAR COAGULATION
     Dosage: UNK UNK, UNK
     Route: 065
     Dates: start: 20130317
  13. ANTITHROMBIN III HUMAN [Concomitant]
     Indication: DISSEMINATED INTRAVASCULAR COAGULATION
     Dosage: UNK UNK, UNK
     Route: 065
     Dates: start: 20130317
  14. INSULIN [Concomitant]
     Indication: PRODUCT USED FOR UNKNOWN INDICATION
     Dosage: UNK UNK, UNK
     Route: 041
     Dates: start: 20130317
  15. DIURETICS [Concomitant]
     Indication: PRODUCT USED FOR UNKNOWN INDICATION
     Dosage: UNK UNK, UNK
     Route: 065

REACTIONS (1)
  - Eosinophilic pneumonia [Recovered/Resolved]
